FAERS Safety Report 12649347 (Version 13)
Quarter: 2020Q1

REPORT INFORMATION
  Report Type: Report from Study
  Country: None (occurrence: NL)
  Receive Date: 20160812
  Receipt Date: 20200312
  Transmission Date: 20200409
  Serious: Yes (Hospitalization, Other)
  Sender: FDA-Public Use
  Company Number: NL-ABBVIE-16P-114-1615258-00

PATIENT
  Age: 68 Year
  Sex: Male

DRUGS (12)
  1. DUODOPA [Suspect]
     Active Substance: CARBIDOPA\LEVODOPA
     Indication: PARKINSON^S DISEASE
     Dosage: MD 10.0, CD 4.1, ED 2.0, ND 2.7
     Route: 050
     Dates: start: 20151116
  2. DUODOPA [Suspect]
     Active Substance: CARBIDOPA\LEVODOPA
     Dosage: CD INCREASED WITH 0.1 ML TO 5.7 ML
     Route: 050
  3. DUODOPA [Suspect]
     Active Substance: CARBIDOPA\LEVODOPA
     Dosage: CD INCREASED WITH 0.2 ML TO 3.9 ML
     Route: 050
  4. DUODOPA [Suspect]
     Active Substance: CARBIDOPA\LEVODOPA
     Dosage: MD: 11.0, CD: 4.3, ED: 3.0, CND: 2.2, END: 2.5
     Route: 050
  5. LAXANS [Concomitant]
     Indication: ABNORMAL FAECES
  6. LAXANTIA [Concomitant]
     Indication: PRODUCT USED FOR UNKNOWN INDICATION
     Route: 065
  7. CLOZAPINE. [Concomitant]
     Active Substance: CLOZAPINE
  8. DUODOPA [Suspect]
     Active Substance: CARBIDOPA\LEVODOPA
     Dosage: CD INCREASED WITH 0.2 ML TO 4.8 ML
     Route: 050
  9. CLOZAPINE. [Concomitant]
     Active Substance: CLOZAPINE
     Indication: PRODUCT USED FOR UNKNOWN INDICATION
  10. PREGABALIN. [Concomitant]
     Active Substance: PREGABALIN
     Indication: ANXIETY
     Dates: start: 2018
  11. DUODOPA [Suspect]
     Active Substance: CARBIDOPA\LEVODOPA
     Dosage: MD 11, CD 4.3, ED 3, CND 3.1, END 3
     Route: 050
  12. CLOZAPINE. [Concomitant]
     Active Substance: CLOZAPINE
     Dosage: DOSE INCREASED

REACTIONS (33)
  - Speech disorder [Unknown]
  - Psychotic disorder [Not Recovered/Not Resolved]
  - Pain in extremity [Not Recovered/Not Resolved]
  - Abdominal pain [Not Recovered/Not Resolved]
  - Suspiciousness [Not Recovered/Not Resolved]
  - Pain [Not Recovered/Not Resolved]
  - Dysphagia [Not Recovered/Not Resolved]
  - Chest pain [Not Recovered/Not Resolved]
  - Feeling abnormal [Recovered/Resolved]
  - Muscle rigidity [Not Recovered/Not Resolved]
  - Abdominal distension [Not Recovered/Not Resolved]
  - Restlessness [Not Recovered/Not Resolved]
  - Flat affect [Not Recovered/Not Resolved]
  - Malaise [Unknown]
  - Chest pain [Not Recovered/Not Resolved]
  - Dystonia [Not Recovered/Not Resolved]
  - Cognitive disorder [Not Recovered/Not Resolved]
  - Balance disorder [Not Recovered/Not Resolved]
  - Weight increased [Recovered/Resolved]
  - Muscle spasms [Not Recovered/Not Resolved]
  - Delusion [Not Recovered/Not Resolved]
  - Dyskinesia [Recovered/Resolved]
  - Hallucination [Recovered/Resolved]
  - Panic reaction [Not Recovered/Not Resolved]
  - Anxiety [Recovered/Resolved]
  - Urinary tract infection [Not Recovered/Not Resolved]
  - Suspiciousness [Recovering/Resolving]
  - Parkinson^s disease [Not Recovered/Not Resolved]
  - Psychomotor hyperactivity [Not Recovered/Not Resolved]
  - Musculoskeletal stiffness [Not Recovered/Not Resolved]
  - Terminal insomnia [Not Recovered/Not Resolved]
  - On and off phenomenon [Recovered/Resolved]
  - Insomnia [Recovered/Resolved]

NARRATIVE: CASE EVENT DATE: 201604
